FAERS Safety Report 18393098 (Version 4)
Quarter: 2021Q1

REPORT INFORMATION
  Report Type: Spontaneous
  Country: DE (occurrence: DE)
  Receive Date: 20201016
  Receipt Date: 20210111
  Transmission Date: 20210419
  Serious: Yes (Other)
  Sender: FDA-Public Use
  Company Number: DE-009507513-2010DEU004971

PATIENT
  Age: 24 Year
  Sex: Female
  Weight: 127 kg

DRUGS (5)
  1. CIRCLET [Suspect]
     Active Substance: ETHINYL ESTRADIOL\ETONOGESTREL
     Indication: CONTRACEPTION
     Dosage: UNK
     Dates: start: 20140101
  2. FOSAVANCE [Suspect]
     Active Substance: ALENDRONATE SODIUM\CHOLECALCIFEROL
     Dosage: UNK
  3. CIRCLET [Suspect]
     Active Substance: ETHINYL ESTRADIOL\ETONOGESTREL
     Indication: CONTRACEPTION
     Dosage: UNK
     Route: 067
     Dates: start: 20200813, end: 20200903
  4. CIRCLET [Suspect]
     Active Substance: ETHINYL ESTRADIOL\ETONOGESTREL
     Dosage: 0.120 MG/0.015 MG
     Dates: start: 2020, end: 20201012
  5. CIRCLET [Suspect]
     Active Substance: ETHINYL ESTRADIOL\ETONOGESTREL
     Dosage: UNK
     Route: 067
     Dates: start: 20200910, end: 2020

REACTIONS (5)
  - Device material issue [Unknown]
  - Pregnancy with contraceptive device [Not Recovered/Not Resolved]
  - Device physical property issue [Unknown]
  - Unintended pregnancy [Not Recovered/Not Resolved]
  - Device colour issue [Unknown]

NARRATIVE: CASE EVENT DATE: 20200924
